FAERS Safety Report 5553943-X (Version None)
Quarter: 2007Q4

REPORT INFORMATION
  Report Type: 
  Country: None (occurrence: None)
  Receive Date: 20071213
  Receipt Date: 20071207
  Transmission Date: 20080405
  Serious: Yes (Other)
  Sender: FDA-Public Use
  Company Number: US-ELI_LILLY_AND_COMPANY-US200710005015

PATIENT
  Sex: Female
  Weight: 75.283 kg

DRUGS (8)
  1. BYETTA [Suspect]
     Dosage: 5 UG, 2/D
     Route: 058
     Dates: start: 20060825, end: 20060929
  2. BYETTA [Suspect]
     Dosage: 10 UG, 2/D
     Route: 058
     Dates: start: 20060929, end: 20071116
  3. METFORMIN HCL [Concomitant]
     Indication: DIABETES MELLITUS
     Dosage: 500 MG, UNKNOWN
     Route: 065
  4. NEURONTIN [Concomitant]
     Dosage: 600 MG, EACH EVENING
     Route: 065
  5. VYTORIN [Concomitant]
     Dosage: UNK, DAILY (1/D)
     Route: 048
  6. ASPIRIN [Concomitant]
     Dosage: UNK, UNKNOWN
     Route: 065
  7. CENESTIN [Concomitant]
     Dosage: 0.45 MG, DAILY (1/D)
     Route: 048
  8. XANAX [Concomitant]
     Dosage: 0.5 MG, UNKNOWN
     Route: 065

REACTIONS (2)
  - PANCREATITIS [None]
  - WEIGHT DECREASED [None]
